FAERS Safety Report 17810697 (Version 1)
Quarter: 2020Q2

REPORT INFORMATION
  Report Type: Spontaneous
  Country: US (occurrence: US)
  Receive Date: 20200521
  Receipt Date: 20200521
  Transmission Date: 20200714
  Serious: No
  Sender: FDA-Public Use
  Company Number: NVSC2020US137822

PATIENT
  Sex: Female

DRUGS (1)
  1. VOTRIENT [Suspect]
     Active Substance: PAZOPANIB HYDROCHLORIDE
     Indication: ENDOMETRIAL CANCER
     Dosage: 800 MG, QD
     Route: 048
     Dates: start: 20200509

REACTIONS (3)
  - Arthralgia [Unknown]
  - Blood pressure increased [Unknown]
  - Nausea [Unknown]
